FAERS Safety Report 5143230-6 (Version None)
Quarter: 2006Q4

REPORT INFORMATION
  Report Type: 
  Country: None (occurrence: None)
  Receive Date: 20061030
  Receipt Date: 20061016
  Transmission Date: 20070319
  Serious: Yes (Hospitalization)
  Sender: FDA-Public Use
  Company Number: FR200609005022

PATIENT
  Age: 85 Year
  Sex: Female
  Weight: 64 kg

DRUGS (15)
  1. FORTEO [Suspect]
     Indication: OSTEOPOROSIS
     Dosage: 20 UG, DAILY (1/D), SUBCUTANEOUS
     Route: 058
     Dates: start: 20050524
  2. FORTEO PEN                                           (FORTEO PEN) PEN, [Concomitant]
  3. ASPIRIN [Concomitant]
  4. COZAAR [Concomitant]
  5. PRAVASTATIN [Concomitant]
  6. CARDENSIEL                      (BISOPROLOL FUMARATE) [Concomitant]
  7. FUROSEMIDE [Concomitant]
  8. NITROGLYCERIN [Concomitant]
  9. DIGOXIN [Concomitant]
  10. IKOREL           (NICORANDIL) [Concomitant]
  11. SERETIDE                        (FLUTICASONE PROPIONATE, SALMETEROL) A [Concomitant]
  12. COMBIVENT [Concomitant]
  13. OMEPRAZOLE [Concomitant]
  14. .. [Concomitant]
  15. .. [Concomitant]

REACTIONS (4)
  - CEREBROVASCULAR ACCIDENT [None]
  - DYSPHASIA [None]
  - MALAISE [None]
  - MUSCLE SPASMS [None]
